FAERS Safety Report 11807769 (Version 1)
Quarter: 2015Q4

REPORT INFORMATION
  Report Type: Spontaneous
  Country: SG (occurrence: SG)
  Receive Date: 20151207
  Receipt Date: 20151207
  Transmission Date: 20160305
  Serious: Yes (Other)
  Sender: FDA-Public Use
  Company Number: SG-BAYER-2015-477720

PATIENT
  Age: 41 Year
  Sex: Female

DRUGS (2)
  1. SYNFLEX [Suspect]
     Active Substance: NAPROXEN SODIUM
     Route: 048
  2. ACETYLSALICYLIC ACID (} 100 MG) [Suspect]
     Active Substance: ASPIRIN
     Route: 048

REACTIONS (1)
  - Face oedema [Unknown]

NARRATIVE: CASE EVENT DATE: 20151022
